FAERS Safety Report 11081911 (Version 2)
Quarter: 2015Q3

REPORT INFORMATION
  Report Type: Report from Study
  Country: BR (occurrence: BR)
  Receive Date: 20150501
  Receipt Date: 20150803
  Transmission Date: 20151125
  Serious: Yes (Disabling, Other)
  Sender: FDA-Public Use
  Company Number: BR-ABBVIE-15K-020-1381761-00

PATIENT
  Age: 39 Year
  Sex: Female
  Weight: 74 kg

DRUGS (10)
  1. PROFENID [Concomitant]
     Active Substance: KETOPROFEN
     Indication: INFLAMMATION
  2. PROFENID [Concomitant]
     Active Substance: KETOPROFEN
     Indication: PAIN
     Dosage: FORM STRENGTH: 220MG + 20MG, DURING 10 DAYS AS NEEDED
  3. HUMIRA [Suspect]
     Active Substance: ADALIMUMAB
     Indication: ANKYLOSING SPONDYLITIS
     Route: 058
     Dates: start: 201406, end: 201505
  4. DOMPERIDONE [Concomitant]
     Active Substance: DOMPERIDONE
     Indication: GASTRIC DISORDER
     Route: 048
     Dates: start: 201503
  5. GAVISCON [Concomitant]
     Active Substance: ALUMINUM HYDROXIDE\MAGNESIUM CARBONATE
     Indication: GASTRITIS
  6. PANTOPRAZOLE [Concomitant]
     Active Substance: PANTOPRAZOLE SODIUM
     Indication: GASTRIC DISORDER
     Route: 048
     Dates: start: 201503
  7. GAVISCON [Concomitant]
     Active Substance: ALUMINUM HYDROXIDE\MAGNESIUM CARBONATE
     Indication: GASTRIC DISORDER
     Route: 048
     Dates: start: 201505
  8. FLUOXETINE [Concomitant]
     Active Substance: FLUOXETINE\FLUOXETINE HYDROCHLORIDE
     Indication: ANTIDEPRESSANT THERAPY
     Route: 048
     Dates: start: 20150205
  9. METHOTREXATE [Concomitant]
     Active Substance: METHOTREXATE
     Indication: ANKYLOSING SPONDYLITIS
     Route: 048
     Dates: start: 201505
  10. FOLIN [Concomitant]
     Indication: PRODUCT USED FOR UNKNOWN INDICATION
     Route: 048
     Dates: start: 201503

REACTIONS (12)
  - Muscle rigidity [Recovered/Resolved]
  - Drug ineffective [Recovering/Resolving]
  - Musculoskeletal stiffness [Unknown]
  - Gait disturbance [Unknown]
  - Mobility decreased [Unknown]
  - Drug effect decreased [Unknown]
  - Depression [Unknown]
  - Mobility decreased [Recovered/Resolved]
  - Spinal deformity [Unknown]
  - Ankylosing spondylitis [Not Recovered/Not Resolved]
  - Pain [Unknown]
  - Abasia [Recovered/Resolved]

NARRATIVE: CASE EVENT DATE: 201411
